FAERS Safety Report 7511281 (Version 3)
Quarter: 2014Q2

REPORT INFORMATION
  Report Type: Report from Study
  Country: US (occurrence: US)
  Receive Date: 20100730
  Receipt Date: 20140530
  Transmission Date: 20141212
  Serious: Yes (Hospitalization)
  Sender: FDA-Public Use
  Company Number: US-JNJFOC-20100708156

PATIENT
  Age: 11 Year
  Sex: Male
  Weight: 28.8 kg

DRUGS (7)
  1. REMICADE [Suspect]
     Indication: CROHN^S DISEASE
     Route: 042
  2. REMICADE [Suspect]
     Indication: CROHN^S DISEASE
     Route: 042
     Dates: start: 20100420
  3. REMICADE [Suspect]
     Indication: CROHN^S DISEASE
     Route: 042
     Dates: start: 20070716
  4. 5-ASA [Concomitant]
  5. ANTIBIOTIC [Concomitant]
     Indication: INFLAMMATORY BOWEL DISEASE
  6. PEPTAMEN [Concomitant]
     Indication: INFLAMMATORY BOWEL DISEASE
  7. COLAZAL [Concomitant]

REACTIONS (1)
  - Crohn^s disease [Recovered/Resolved]
